FAERS Safety Report 10150269 (Version 1)
Quarter: 2014Q2

REPORT INFORMATION
  Report Type: Spontaneous
  Country: US (occurrence: US)
  Receive Date: 20140502
  Receipt Date: 20140502
  Transmission Date: 20141212
  Serious: Yes (Other)
  Sender: FDA-Public Use
  Company Number: US-OTSUKA-US-2014-10874

PATIENT
  Sex: 0

DRUGS (1)
  1. BUSULFEX [Suspect]
     Indication: STEM CELL TRANSPLANT
     Dosage: UNK
     Route: 065

REACTIONS (5)
  - Toxicity to various agents [Unknown]
  - Infection [Unknown]
  - Hepatotoxicity [Unknown]
  - Graft versus host disease [Unknown]
  - Pneumonitis [Unknown]
